FAERS Safety Report 23672402 (Version 1)
Quarter: 2024Q1

REPORT INFORMATION
  Report Type: Spontaneous
  Country: SK (occurrence: None)
  Receive Date: 20240326
  Receipt Date: 20240326
  Transmission Date: 20240410
  Serious: Yes (Death, Other)
  Sender: FDA-Public Use
  Company Number: SK-ROCHE-3528118

PATIENT

DRUGS (1)
  1. OCREVUS [Suspect]
     Active Substance: OCRELIZUMAB
     Indication: Product used for unknown indication
     Dosage: LAST DOSE ON 05/JUN/2023
     Route: 064

REACTIONS (2)
  - Foetal exposure during pregnancy [Unknown]
  - Stillbirth [Fatal]
